FAERS Safety Report 10540791 (Version 3)
Quarter: 2014Q4

REPORT INFORMATION
  Report Type: Spontaneous
  Country: JP (occurrence: JP)
  Receive Date: 20141024
  Receipt Date: 20141028
  Transmission Date: 20150529
  Serious: Yes (Hospitalization, Other)
  Sender: FDA-Public Use
  Company Number: JP-PFIZER INC-2014188492

PATIENT
  Age: 56 Year
  Sex: Male
  Weight: 59.1 kg

DRUGS (5)
  1. HEPARIN [Concomitant]
     Active Substance: HEPARIN SODIUM
     Dosage: UNK
  2. WARFARIN [Interacting]
     Active Substance: WARFARIN
     Indication: DIALYSIS
     Dosage: 2.25 MG, DAILY
     Route: 048
  3. BAYASPIRIN [Concomitant]
     Active Substance: ASPIRIN
     Dosage: 100 MG, 1X/DAY
     Route: 048
  4. SUTENT [Suspect]
     Active Substance: SUNITINIB MALATE
     Indication: METASTATIC RENAL CELL CARCINOMA
     Dosage: 25 MG, 1X/DAY
     Route: 048
     Dates: start: 20140618, end: 20140804
  5. WARFARIN [Interacting]
     Active Substance: WARFARIN
     Dosage: 1.75 MG, 1X/DAY
     Route: 048
     Dates: start: 20140704, end: 20140804

REACTIONS (3)
  - International normalised ratio increased [Recovering/Resolving]
  - Gastrointestinal haemorrhage [Recovered/Resolved]
  - Drug interaction [Recovering/Resolving]

NARRATIVE: CASE EVENT DATE: 20140627
